FAERS Safety Report 4355251-1 (Version None)
Quarter: 2004Q2

REPORT INFORMATION
  Report Type: 
  Country: None (occurrence: None)
  Receive Date: 20040504
  Receipt Date: 20040421
  Transmission Date: 20050107
  Serious: Yes (Other)
  Sender: FDA-Public Use
  Company Number: 2004019357

PATIENT
  Age: 74 Year
  Sex: Male
  Weight: 200 kg

DRUGS (2)
  1. NORVASC [Suspect]
     Indication: BLOOD PRESSURE INCREASED
     Dosage: DAILY
     Dates: start: 20021201, end: 20030401
  2. HYDRALAZINE HCL TAB [Concomitant]

REACTIONS (15)
  - AORTIC ANEURYSM [None]
  - APTYALISM [None]
  - BLOOD PRESSURE INADEQUATELY CONTROLLED [None]
  - BURNING SENSATION [None]
  - CONSTIPATION [None]
  - DISCOMFORT [None]
  - DRUG INEFFECTIVE [None]
  - EATING DISORDER [None]
  - EYE IRRITATION [None]
  - FEELING HOT [None]
  - INFREQUENT BOWEL MOVEMENTS [None]
  - KERATOCONJUNCTIVITIS SICCA [None]
  - RENAL IMPAIRMENT [None]
  - VOMITING [None]
  - WEIGHT DECREASED [None]
